FAERS Safety Report 21375765 (Version 1)
Quarter: 2022Q3

REPORT INFORMATION
  Report Type: Spontaneous
  Country: FR (occurrence: FR)
  Receive Date: 20220926
  Receipt Date: 20220926
  Transmission Date: 20221027
  Serious: Yes (Death, Hospitalization)
  Sender: FDA-Public Use
  Company Number: FR-BAYER-2022A132718

PATIENT
  Age: 22 Year
  Sex: Male

DRUGS (1)
  1. VITRAKVI [Suspect]
     Active Substance: LAROTRECTINIB
     Indication: Malignant mediastinal neoplasm
     Dosage: UNK
     Dates: start: 202206

REACTIONS (1)
  - Malignant mediastinal neoplasm [Fatal]
